FAERS Safety Report 5936806-7 (Version None)
Quarter: 2008Q4

REPORT INFORMATION
  Report Type: 
  Country: None (occurrence: None)
  Receive Date: 20081029
  Receipt Date: 20081014
  Transmission Date: 20090506
  Serious: Yes (Death)
  Sender: FDA-Public Use
  Company Number: 220007K08USA

PATIENT
  Age: 9 Year
  Sex: Female
  Weight: 20 kg

DRUGS (3)
  1. SAIZEN [Suspect]
     Indication: GROWTH HORMONE DEFICIENCY
     Dosage: 0.8 MG
     Dates: start: 20080510, end: 20081007
  2. ALBUTEROL [Concomitant]
  3. CLINDAMYCIN HCL [Concomitant]

REACTIONS (4)
  - INFLUENZA [None]
  - NO THERAPEUTIC RESPONSE [None]
  - SEPSIS [None]
  - SHOCK [None]
